FAERS Safety Report 7402695-7 (Version None)
Quarter: 2011Q1

REPORT INFORMATION
  Report Type: 
  Country: None (occurrence: None)
  Receive Date: 20110330
  Receipt Date: 20110318
  Transmission Date: 20110831
  Serious: Yes (Death, Hospitalization)
  Sender: FDA-Public Use
  Company Number: CL-303-2011

PATIENT
  Sex: Male

DRUGS (2)
  1. CIPROFLOXACIN UNK [Suspect]
     Dosage: INTRAVENOUS
     Route: 042
  2. IMMUNOSUPPRESSIVES [Suspect]
     Indication: NON-HODGKIN'S LYMPHOMA

REACTIONS (2)
  - HYPERSENSITIVITY [None]
  - MALAISE [None]
